FAERS Safety Report 10654400 (Version 1)
Quarter: 2014Q4

REPORT INFORMATION
  Report Type: Spontaneous
  Country: US (occurrence: None)
  Receive Date: 20141215
  Receipt Date: 20141215
  Transmission Date: 20150529
  Serious: No
  Sender: FDA-Public Use
  Company Number: None

PATIENT
  Age: 35 Year
  Sex: Female
  Weight: 56.7 kg

DRUGS (1)
  1. ADDERALL [Suspect]
     Active Substance: AMPHETAMINE ASPARTATE\AMPHETAMINE SULFATE\DEXTROAMPHETAMINE SACCHARATE\DEXTROAMPHETAMINE SULFATE
     Indication: ATTENTION DEFICIT/HYPERACTIVITY DISORDER
     Dosage: 1 TWICE DAILY TAKEN BY MOUTH
     Route: 048
     Dates: start: 20141117, end: 20141212

REACTIONS (11)
  - Headache [None]
  - Abdominal pain upper [None]
  - Visual impairment [None]
  - Chest discomfort [None]
  - Acne [None]
  - Pain [None]
  - Tremor [None]
  - Oral pain [None]
  - Product quality issue [None]
  - Anxiety [None]
  - Product physical issue [None]

NARRATIVE: CASE EVENT DATE: 20141212
